FAERS Safety Report 4406632-9 (Version None)
Quarter: 2004Q3

REPORT INFORMATION
  Report Type: 
  Country: None (occurrence: None)
  Receive Date: 20040723
  Receipt Date: 20040628
  Transmission Date: 20050211
  Serious: Yes (Other)
  Sender: FDA-Public Use
  Company Number: PHEH2004US07070

PATIENT
  Age: 91 Year
  Sex: Female

DRUGS (1)
  1. MIACALCIN [Suspect]
     Route: 045

REACTIONS (1)
  - HIP FRACTURE [None]
